FAERS Safety Report 8391897-1 (Version None)
Quarter: 2012Q2

REPORT INFORMATION
  Report Type: 
  Country: None (occurrence: None)
  Receive Date: 20120529
  Receipt Date: 20120523
  Transmission Date: 20120825
  Serious: Yes (Hospitalization)
  Sender: FDA-Public Use
  Company Number: US-GLAXOSMITHKLINE-A0979119A

PATIENT
  Age: 65 Year
  Sex: Male
  Weight: 68.5 kg

DRUGS (11)
  1. HYDROCHLOROTHIAZIDE [Concomitant]
     Dosage: 25MG PER DAY
     Route: 048
  2. TERAZOSIN HCL [Concomitant]
     Dosage: 1MG PER DAY
     Route: 048
  3. PAZOPANIB [Suspect]
     Indication: CHONDROSARCOMA
     Dosage: 800MG PER DAY
     Route: 048
     Dates: start: 20120423, end: 20120521
  4. BENAZEPRIL HYDROCHLORIDE [Concomitant]
     Dosage: 40MG TWICE PER DAY
     Route: 048
  5. CATAPRES [Concomitant]
     Dosage: .4MG TWICE PER DAY
     Route: 048
  6. GABAPENTIN [Concomitant]
     Dosage: 300MG TWICE PER DAY
     Route: 048
  7. NORVASC [Concomitant]
     Dosage: 10MG PER DAY
     Route: 048
  8. HYDROCODONE BITARTRATE + ACETAMINOPHEN [Concomitant]
     Route: 048
  9. IBUPROFEN [Concomitant]
     Dosage: 600MG AS REQUIRED
     Route: 048
  10. CIALIS [Concomitant]
     Dosage: 20MG PER DAY
     Route: 048
  11. METOPROLOL TARTRATE [Concomitant]
     Dosage: 50MG PER DAY
     Route: 048

REACTIONS (3)
  - ELECTROCARDIOGRAM ABNORMAL [None]
  - TROPONIN INCREASED [None]
  - HYPERTENSION [None]
